FAERS Safety Report 16024125 (Version 1)
Quarter: 2019Q1

REPORT INFORMATION
  Report Type: Spontaneous
  Country: US (occurrence: US)
  Receive Date: 20190301
  Receipt Date: 20190301
  Transmission Date: 20190418
  Serious: No
  Sender: FDA-Public Use
  Company Number: US-IMPAX LABORATORIES, LLC-2018-IPXL-01606

PATIENT
  Age: 43 Year
  Sex: Female

DRUGS (1)
  1. EMVERM [Suspect]
     Active Substance: MEBENDAZOLE
     Indication: INFECTION PARASITIC
     Dosage: 100 MG, BID
     Route: 048
     Dates: start: 201804, end: 201804

REACTIONS (6)
  - Flushing [Recovered/Resolved]
  - Peripheral swelling [Unknown]
  - Bladder disorder [Unknown]
  - Swelling face [Unknown]
  - Headache [Recovered/Resolved]
  - Feeling hot [Unknown]

NARRATIVE: CASE EVENT DATE: 20180406
